FAERS Safety Report 17680770 (Version 2)
Quarter: 2020Q3

REPORT INFORMATION
  Report Type: Spontaneous
  Country: US (occurrence: US)
  Receive Date: 20200417
  Receipt Date: 20200924
  Transmission Date: 20201102
  Serious: No
  Sender: FDA-Public Use
  Company Number: US-BIOVITRUM-2020US1858

PATIENT
  Sex: Female

DRUGS (5)
  1. LORAZEPAM. [Concomitant]
     Active Substance: LORAZEPAM
  2. KINERET [Suspect]
     Active Substance: ANAKINRA
     Indication: PERICARDITIS
     Route: 058
     Dates: start: 201904
  3. DEXADRINE [Concomitant]
     Indication: NARCOLEPSY
  4. FLUOXETINE [Concomitant]
     Active Substance: FLUOXETINE HYDROCHLORIDE
  5. COLCRYS [Concomitant]
     Active Substance: COLCHICINE

REACTIONS (5)
  - Syringe issue [Unknown]
  - Sensitive skin [Unknown]
  - Injection site pain [Unknown]
  - Off label use [Unknown]
  - Injection site swelling [Unknown]
